FAERS Safety Report 8633901 (Version 4)
Quarter: 2012Q4

REPORT INFORMATION
  Report Type: 
  Country: JP (occurrence: JP)
  Receive Date: 20120625
  Receipt Date: 20121025
  Transmission Date: 20130627
  Serious: Yes (Hospitalization)
  Sender: FDA-Public Use
  Company Number: JP-TEVA-344885USA

PATIENT
  Age: 59 Year
  Sex: Female
  Weight: 54 kg

DRUGS (8)
  1. TREANDA [Suspect]
     Indication: B-CELL LYMPHOMA
     Route: 042
     Dates: start: 20120419, end: 20120420
  2. TREANDA [Suspect]
     Route: 042
     Dates: start: 20120511, end: 20120512
  3. TREANDA [Suspect]
     Route: 042
     Dates: start: 20120511, end: 20120512
  4. RITUXIMAB [Concomitant]
     Indication: B-CELL LYMPHOMA
     Dates: start: 20120510
  5. FLUCONAZOLE [Concomitant]
     Indication: FUNGAL INFECTION
     Dates: start: 20120419
  6. ACICLOVIR [Concomitant]
     Indication: HERPES ZOSTER
     Dates: start: 20120419
  7. SULFAMETHOXAZOLE W/TRIMETHOPRIM [Concomitant]
     Indication: PNEUMONIA
     Dates: start: 20120419
  8. TOFISOPAM [Concomitant]
     Indication: ANXIETY
     Dates: start: 20120416

REACTIONS (2)
  - Reticulocyte count increased [Unknown]
  - Hyperbilirubinaemia [Unknown]
